FAERS Safety Report 15350585 (Version 3)
Quarter: 2018Q4

REPORT INFORMATION
  Report Type: Spontaneous
  Country: JP (occurrence: JP)
  Receive Date: 20180905
  Receipt Date: 20181113
  Transmission Date: 20190204
  Serious: Yes (Death, Other)
  Sender: FDA-Public Use
  Company Number: JP-009507513-1808JPN000692J

PATIENT
  Age: 59 Year
  Sex: Male

DRUGS (1)
  1. PREVYMIS [Suspect]
     Active Substance: LETERMOVIR
     Dosage: 480 MILLIGRAM, QD
     Route: 041
     Dates: start: 20180715, end: 201808

REACTIONS (2)
  - Renal impairment [Unknown]
  - Graft versus host disease [Fatal]

NARRATIVE: CASE EVENT DATE: 2018
